FAERS Safety Report 22199233 (Version 1)
Quarter: 2023Q2

REPORT INFORMATION
  Report Type: Spontaneous
  Country: None (occurrence: US)
  Receive Date: 20230411
  Receipt Date: 20230411
  Transmission Date: 20230722
  Serious: No
  Sender: FDA-Public Use
  Company Number: US-Shanghai Hengrui Pharmaceutical Co., Ltd.-2140181

PATIENT
  Age: 21 Year
  Sex: Male
  Weight: 90 kg

DRUGS (6)
  1. SEVOFLURANE [Suspect]
     Active Substance: SEVOFLURANE
     Indication: General anaesthesia
     Route: 041
  2. MIDAZOLAM [Concomitant]
     Active Substance: MIDAZOLAM
  3. FENTANYL [Concomitant]
     Active Substance: FENTANYL
  4. PROPOFOL [Concomitant]
     Active Substance: PROPOFOL
  5. CEFAZOLIN [Concomitant]
     Active Substance: CEFAZOLIN
  6. ONDANSETRON [Concomitant]
     Active Substance: ONDANSETRON

REACTIONS (1)
  - Pulmonary alveolar haemorrhage [Recovering/Resolving]
